FAERS Safety Report 4410721-2 (Version None)
Quarter: 2004Q2

REPORT INFORMATION
  Report Type: 
  Country: None (occurrence: None)
  Receive Date: 20040630
  Receipt Date: 20040426
  Transmission Date: 20050107
  Serious: No
  Sender: FDA-Public Use
  Company Number: 04P-163-0258753-00

PATIENT
  Age: 58 Year
  Sex: Female
  Weight: 50.8029 kg

DRUGS (11)
  1. HUMIRA [Suspect]
     Indication: RHEUMATOID ARTHRITIS
     Dosage: 40 MG, 1 IN 2 WK SUBCUTANEOUS
     Route: 058
     Dates: start: 20040414
  2. TRIAMTERENE [Concomitant]
  3. LISINOPRIL [Concomitant]
  4. ZOCOR [Concomitant]
  5. CELECOXIB [Concomitant]
  6. METHOTREXATE [Concomitant]
  7. RISEDRONATE SODIUM [Concomitant]
  8. ROCALTROL [Concomitant]
  9. PROPACET 100 [Concomitant]
  10. ZOLPIDEM TARTRATE [Concomitant]
  11. RESTASIS [Concomitant]

REACTIONS (2)
  - ERUCTATION [None]
  - NAUSEA [None]
